FAERS Safety Report 4342591-5 (Version None)
Quarter: 2004Q2

REPORT INFORMATION
  Report Type: 
  Country: None (occurrence: None)
  Receive Date: 20040416
  Receipt Date: 20040331
  Transmission Date: 20050107
  Serious: No
  Sender: FDA-Public Use
  Company Number: 2004UW07085

PATIENT
  Age: 3 Year
  Sex: Female
  Weight: 15.8759 kg

DRUGS (3)
  1. PULMICORT [Suspect]
     Indication: ASTHMA
     Dosage: 0.5 MG BID IH
     Route: 045
     Dates: start: 20040214
  2. VENTOLIN [Concomitant]
  3. AMOXICILLIN [Concomitant]

REACTIONS (2)
  - HYPERHIDROSIS [None]
  - PALLOR [None]
